FAERS Safety Report 9007839 (Version 2)
Quarter: 2013Q1

REPORT INFORMATION
  Report Type: Spontaneous
  Country: HR (occurrence: HR)
  Receive Date: 20130111
  Receipt Date: 20130329
  Transmission Date: 20140127
  Serious: Yes (Hospitalization, Other)
  Sender: FDA-Public Use
  Company Number: HR-MERCK-1301HRV003092

PATIENT
  Age: 56 Year
  Sex: Male
  Weight: 85 kg

DRUGS (7)
  1. CARBIDOPA (+) LEVODOPA [Suspect]
     Indication: PARKINSON^S DISEASE
     Dosage: 650 MG, QD
     Route: 048
     Dates: start: 201210
  2. TRILEPTAL [Suspect]
     Indication: PARKINSON^S DISEASE
     Dosage: 75 G, QD
     Route: 048
     Dates: start: 201210
  3. LYRICA [Suspect]
     Indication: PARKINSON^S DISEASE
     Dosage: 75 MG, QD
     Route: 048
     Dates: start: 201210
  4. PK-MERZ [Suspect]
     Indication: PARKINSON^S DISEASE
     Dosage: 100 MG, TID
     Route: 048
     Dates: start: 201210
  5. SANVAL [Concomitant]
     Dosage: 10 MG, QD
  6. CLEXANE (ENOXAPARIN SODIUM) [Concomitant]
     Dosage: 0.4 ML, QD
     Route: 058
  7. KALINOR [Concomitant]
     Route: 048

REACTIONS (7)
  - Condition aggravated [Not Recovered/Not Resolved]
  - Pyrexia [Not Recovered/Not Resolved]
  - Dyspnoea [Not Recovered/Not Resolved]
  - Urinary retention [Not Recovered/Not Resolved]
  - Parkinson^s disease [Not Recovered/Not Resolved]
  - Therapeutic response decreased [Unknown]
  - Condition aggravated [Not Recovered/Not Resolved]
